FAERS Safety Report 9122845 (Version 1)
Quarter: 2013Q1

REPORT INFORMATION
  Report Type: Spontaneous
  Country: US (occurrence: US)
  Receive Date: 20130227
  Receipt Date: 20130227
  Transmission Date: 20140127
  Serious: No
  Sender: FDA-Public Use
  Company Number: US-GLAXOSMITHKLINE-A0961804A

PATIENT
  Age: 67 Year
  Sex: Female

DRUGS (9)
  1. VALACYCLOVIR [Suspect]
     Indication: GENITAL HERPES
     Dosage: 500MG PER DAY
     Route: 048
     Dates: start: 201107, end: 20111229
  2. AMBIEN [Concomitant]
  3. RESTASIS [Concomitant]
  4. MULTIVITAMIN [Concomitant]
  5. CALCIUM [Concomitant]
  6. MAGNESIUM [Concomitant]
  7. VITAMIN C [Concomitant]
  8. FOLIC ACID [Concomitant]
  9. BABY ASPIRIN [Concomitant]

REACTIONS (2)
  - Headache [Recovered/Resolved]
  - Eye pain [Unknown]
